FAERS Safety Report 5883674-8 (Version None)
Quarter: 2008Q3

REPORT INFORMATION
  Report Type: 
  Country: None (occurrence: None)
  Receive Date: 20080915
  Receipt Date: 20080903
  Transmission Date: 20090109
  Serious: Yes (Hospitalization)
  Sender: FDA-Public Use
  Company Number: KR-ELI_LILLY_AND_COMPANY-KR200804005778

PATIENT
  Sex: Female
  Weight: 51.8 kg

DRUGS (23)
  1. PEMETREXED [Suspect]
     Indication: NON-SMALL CELL LUNG CANCER
     Dosage: 765 MG, DAY 1 EVERY 3 WEEKS
     Route: 042
     Dates: start: 20080121
  2. PEMETREXED [Suspect]
     Dosage: 765 MG, UNKNOWN
     Route: 042
     Dates: start: 20080101
  3. PEMETREXED [Suspect]
     Dosage: 775 MG, UNKNOWN
     Route: 042
     Dates: start: 20080101
  4. PEMETREXED [Suspect]
     Dosage: 770 MG, UNKNOWN
     Route: 042
     Dates: start: 20080101
  5. PEMETREXED [Suspect]
     Dosage: 770 MG, UNKNOWN
     Route: 042
     Dates: start: 20080417
  6. CARBOPLATIN [Suspect]
     Indication: NON-SMALL CELL LUNG CANCER
     Dosage: 387 MG, DAY 1 EVERY 3 WEEKS
     Route: 042
     Dates: start: 20080121
  7. CARBOPLATIN [Suspect]
     Dosage: 456 MG, UNKNOWN
     Route: 042
     Dates: start: 20080101
  8. CARBOPLATIN [Suspect]
     Dosage: 462 MG, UNKNOWN
     Route: 042
     Dates: start: 20080101
  9. CARBOPLATIN [Suspect]
     Dosage: 459 MG, UNKNOWN
     Route: 042
     Dates: start: 20080101
  10. CARBOPLATIN [Suspect]
     Dosage: 448 MG, UNKNOWN
     Route: 042
     Dates: start: 20080417
  11. FOLIC ACID [Concomitant]
     Indication: PROPHYLAXIS
     Dosage: 1000 UG, DAILY (1/D)
     Route: 048
     Dates: start: 20080121
  12. VITAMIN B-12 [Concomitant]
     Indication: PROPHYLAXIS
     Dosage: 1000 UG, UNKNOWN
     Dates: start: 20080114
  13. DEXAMETHASONE [Concomitant]
     Indication: PROPHYLAXIS
     Dosage: 4 MG, 2/D
     Dates: start: 20080121, end: 20080309
  14. ZOLPIDEM TARTRATE [Concomitant]
     Indication: INSOMNIA
     Dosage: 12.5 MG, UNKNOWN
     Dates: start: 20080408, end: 20080414
  15. METOCLOPRAMIDE HYDROCHLORIDE [Concomitant]
     Indication: PROPHYLAXIS
     Dosage: 5 MG, UNKNOWN
     Dates: start: 20080325, end: 20080414
  16. ACETAMINOPHEN [Concomitant]
     Indication: HEADACHE
     Dosage: 1300 MG, UNKNOWN
     Dates: start: 20080415, end: 20080421
  17. CIPROFLOXACIN HYDROCHLORIDE [Concomitant]
     Indication: UPPER RESPIRATORY TRACT INFECTION
     Dosage: 582 MG, UNKNOWN
     Dates: start: 20080415, end: 20080421
  18. ATORVASTATIN CALCIUM [Concomitant]
     Indication: ANTIEMETIC SUPPORTIVE CARE
     Dosage: 10.85 MG, UNK
     Dates: start: 20080122, end: 20080220
  19. ONDANSETRON [Concomitant]
     Indication: ANTIEMETIC SUPPORTIVE CARE
     Dosage: 16 MG, UNK
     Dates: start: 20080123, end: 20080125
  20. CODEINE PHOSPHATE [Concomitant]
     Indication: COUGH
     Dosage: 80 MG, UNK
     Dates: start: 20080131, end: 20080213
  21. CIMETIDINE [Concomitant]
     Dosage: 600 MG, UNK
     Dates: start: 20080214, end: 20080218
  22. ITOPRIDE HYDROCHLORIDE [Concomitant]
     Dosage: 150 MG, UNK
     Dates: start: 20080214, end: 20080218
  23. BENPROPERINE PHOSPHATE [Concomitant]
     Indication: COUGH
     Dosage: 78.9 MG, UNK
     Dates: start: 20080306, end: 20080319

REACTIONS (1)
  - VOMITING [None]
